FAERS Safety Report 8609634-1 (Version None)
Quarter: 2012Q3

REPORT INFORMATION
  Report Type: 
  Country: None (occurrence: None)
  Receive Date: 20120821
  Receipt Date: 20120820
  Transmission Date: 20120928
  Serious: Yes (Death, Hospitalization)
  Sender: FDA-Public Use
  Company Number: IT-BAYER-2012-062308

PATIENT
  Age: 73 Year
  Sex: Male

DRUGS (4)
  1. CHLORTHALIDONE [Concomitant]
     Dosage: DAILY DOSE 1 DF
     Route: 048
  2. RAMIPRIL [Concomitant]
     Dosage: DAILY DOSE 1 DF
     Route: 048
  3. ZOLOFT [Concomitant]
     Dosage: DAILY DOSE 50 MG
     Route: 048
  4. ASPIRIN [Suspect]
     Indication: TRANSIENT ISCHAEMIC ATTACK
     Dosage: 100 MG, QD
     Route: 048
     Dates: start: 20111219

REACTIONS (8)
  - NYSTAGMUS [None]
  - HYPOXIC-ISCHAEMIC ENCEPHALOPATHY [None]
  - HEADACHE [None]
  - BRAIN STEM HAEMORRHAGE [None]
  - CONFUSIONAL STATE [None]
  - DYSARTHRIA [None]
  - VOMITING [None]
  - CEREBRAL HAEMORRHAGE [None]
